FAERS Safety Report 9562494 (Version 5)
Quarter: 2014Q1

REPORT INFORMATION
  Report Type: Spontaneous
  Country: US (occurrence: US)
  Receive Date: 20130927
  Receipt Date: 20140318
  Transmission Date: 20141002
  Serious: Yes (Hospitalization, Other)
  Sender: FDA-Public Use
  Company Number: US-PFIZER INC-2013258532

PATIENT
  Age: 66 Year
  Sex: Male
  Weight: 81.63 kg

DRUGS (27)
  1. LYRICA [Suspect]
     Indication: DIABETIC NEUROPATHY
     Dosage: 200 MG, 3X/DAY
     Route: 048
  2. LYRICA [Suspect]
     Indication: DIABETIC NEUROPATHY
     Dosage: UNK
     Dates: start: 20130916
  3. LYRICA [Suspect]
     Dosage: 25 MG, 1X/DAY
     Route: 048
     Dates: start: 20130429
  4. IBUPROFEN [Concomitant]
     Dosage: UNK, AS NEEDED
  5. LISINOPRIL [Concomitant]
     Dosage: 20 MG, 1X/DAY
     Route: 048
     Dates: start: 20130802
  6. MEVACOR [Concomitant]
     Dosage: 40 MG, 1X/DAY (NIGHTLY)
     Route: 048
     Dates: start: 20130611
  7. LANTUS [Concomitant]
     Dosage: 20 IU, 1X/DAY
     Route: 058
     Dates: start: 20121214
  8. HUMALOG [Concomitant]
     Dosage: 100 U/ML SOLUTION SLIDING SCALE
     Route: 058
     Dates: start: 20121214
  9. PRILOSEC [Concomitant]
     Dosage: 40 MG, 1X/DAY
     Route: 048
     Dates: start: 20130611
  10. XALATAN [Concomitant]
     Dosage: 1 DF, 1X/DAY NIGHTLY
     Route: 047
     Dates: start: 20130614
  11. ULTRACET [Concomitant]
     Indication: PAIN
     Dosage: 1 DF, AS NEEDED
     Route: 048
  12. SYSTANE [Concomitant]
     Dosage: UNK, 1X/DAY AT BEDTIME
     Route: 047
  13. ASPIRIN [Concomitant]
     Dosage: 81 MG, 1X/DAY (NIGHTLY)
     Route: 048
  14. LASIX [Concomitant]
     Dosage: 20 MG, 1X/DAY
     Route: 048
  15. MULTIVITAMINS [Concomitant]
     Dosage: 1 DF, 1X/DAY
     Route: 048
  16. OMEGA 3 [Concomitant]
     Dosage: 2 G, DAILY
     Route: 048
  17. ACYCLOVIR [Concomitant]
     Dosage: 800 MG, 2X/DAY
     Route: 048
  18. PLAVIX [Concomitant]
     Dosage: 75 MG, 1X/DAY
     Route: 048
     Dates: end: 20130610
  19. OFLOXACIN [Concomitant]
     Dosage: 1 DF, 1X/DAY AT BEDTIME
  20. VITAMIN C [Concomitant]
     Dosage: 1000 MG, 1X/DAY
     Route: 048
  21. ATROPINE SULFATE/DIPHENOXYLATE HYDROCHLORIDE [Concomitant]
     Dosage: 1 DF, EVERY 6 HOURS
     Route: 048
  22. EMLA CREAM [Concomitant]
     Dosage: UNK
     Route: 061
  23. BETIMOL [Concomitant]
     Dosage: 1 DF, 2X/DAY
  24. IMODIUM [Concomitant]
     Dosage: 2 MG, 3X/DAY
     Route: 048
  25. LIQUIFILM TEARS [Concomitant]
     Dosage: 1 DF, AS NEEDED
     Route: 047
  26. PROCHLORPERAZINE MALEATE [Concomitant]
     Indication: NAUSEA
     Dosage: 1 DF, AS NEEDED
     Route: 048
  27. TRUBIOTICS [Concomitant]
     Dosage: UNK
     Route: 048

REACTIONS (14)
  - Colon cancer [Unknown]
  - Clostridium difficile infection [Recovered/Resolved]
  - Diarrhoea [Recovered/Resolved]
  - Blood pressure decreased [Recovered/Resolved]
  - Visual acuity reduced [Unknown]
  - Vision blurred [Unknown]
  - Dry eye [Unknown]
  - Dehydration [Unknown]
  - Blood pressure decreased [Unknown]
  - Blindness unilateral [Unknown]
  - Musculoskeletal disorder [Unknown]
  - Diarrhoea [Unknown]
  - Nausea [Unknown]
  - Vomiting [Unknown]
